FAERS Safety Report 6725236-6 (Version None)
Quarter: 2010Q2

REPORT INFORMATION
  Report Type: 
  Country: None (occurrence: None)
  Receive Date: 20100513
  Receipt Date: 20100513
  Transmission Date: 20101027
  Serious: Yes (Other)
  Sender: FDA-Public Use
  Company Number: None

PATIENT
  Age: 60 Year
  Sex: Female
  Weight: 124.7392 kg

DRUGS (11)
  1. CRESTOR [Suspect]
     Indication: BLOOD CHOLESTEROL INCREASED
     Dosage: 10MG Q AM PO
     Route: 048
     Dates: start: 20100417, end: 20100429
  2. CRESTOR [Suspect]
     Indication: BLOOD TRIGLYCERIDES INCREASED
     Dosage: 10MG Q AM PO
     Route: 048
     Dates: start: 20100417, end: 20100429
  3. SYNTHROID [Concomitant]
  4. TEGRETOL [Concomitant]
  5. WELLBUTRIN [Concomitant]
  6. CELEXA [Concomitant]
  7. ATACAND [Concomitant]
  8. RESTOREL [Concomitant]
  9. TYE #3 [Concomitant]
  10. PRILOSEC [Concomitant]
  11. CLARITIN [Concomitant]

REACTIONS (3)
  - AFFECT LABILITY [None]
  - ANGER [None]
  - FEELING OF DESPAIR [None]
